FAERS Safety Report 25974718 (Version 3)
Quarter: 2025Q4

REPORT INFORMATION
  Report Type: Report from Study
  Country: US (occurrence: US)
  Receive Date: 20251029
  Receipt Date: 20251224
  Transmission Date: 20260117
  Serious: Yes (Other)
  Sender: TAKEDA
  Company Number: US-TAKEDA-2025TUS084937

PATIENT
  Age: 80 Year
  Sex: Female

DRUGS (1)
  1. FRUQUINTINIB [Suspect]
     Active Substance: FRUQUINTINIB
     Indication: Rectosigmoid cancer
     Dosage: 1 MILLIGRAM

REACTIONS (14)
  - Metastases to lung [Unknown]
  - Eructation [Unknown]
  - Dysphonia [Unknown]
  - Fatigue [Unknown]
  - Illness [Unknown]
  - Dyspnoea [Unknown]
  - Loss of personal independence in daily activities [Unknown]
  - Product dose omission issue [Unknown]
  - Somnolence [Unknown]
  - Abdominal pain upper [Unknown]
  - Cholelithiasis [Unknown]
  - Neck pain [Unknown]
  - Back pain [Unknown]
  - Asthenia [Unknown]
